FAERS Safety Report 14327387 (Version 1)
Quarter: 2017Q4

REPORT INFORMATION
  Report Type: Spontaneous
  Country: US (occurrence: US)
  Receive Date: 20171226
  Receipt Date: 20171226
  Transmission Date: 20180321
  Serious: No
  Sender: FDA-Public Use
  Company Number: None

PATIENT
  Age: 64 Year
  Sex: Female

DRUGS (14)
  1. AMOXICILLIN. [Concomitant]
     Active Substance: AMOXICILLIN
  2. ASPIRIN. [Concomitant]
     Active Substance: ASPIRIN
  3. ELIQUIS [Concomitant]
     Active Substance: APIXABAN
  4. ATORVASTATIN [Concomitant]
     Active Substance: ATORVASTATIN
  5. LANSOPRAZOLE. [Concomitant]
     Active Substance: LANSOPRAZOLE
  6. PROBIOTIC [Concomitant]
     Active Substance: PROBIOTICS NOS
  7. ENBREL [Suspect]
     Active Substance: ETANERCEPT
     Indication: DIVERTICULUM
     Dosage: PRE-FILLED SYRINGE 50MG *RG WEEKLY SUBCUTANEOUS
     Route: 058
     Dates: start: 20171206
  8. CALCIUM ACETATE. [Concomitant]
     Active Substance: CALCIUM ACETATE
  9. XANAX [Concomitant]
     Active Substance: ALPRAZOLAM
  10. TYLENOL [Concomitant]
     Active Substance: ACETAMINOPHEN
  11. VITAMIN D [Concomitant]
     Active Substance: CHOLECALCIFEROL
  12. ALPRAZOLAM. [Concomitant]
     Active Substance: ALPRAZOLAM
  13. DIOVAN [Concomitant]
     Active Substance: VALSARTAN
  14. VALSART/HCTZ TAB [Concomitant]
     Active Substance: HYDROCHLOROTHIAZIDE\VALSARTAN

REACTIONS (1)
  - Rectal haemorrhage [None]

NARRATIVE: CASE EVENT DATE: 201712
